FAERS Safety Report 14301093 (Version 2)
Quarter: 2018Q1

REPORT INFORMATION
  Report Type: Report from Study
  Country: FR (occurrence: FR)
  Receive Date: 20171219
  Receipt Date: 20180313
  Transmission Date: 20180509
  Serious: Yes (Hospitalization, Other)
  Sender: FDA-Public Use
  Company Number: FR-ASPEN-GLO2017FR008266

PATIENT
  Age: 3 Year
  Sex: Male

DRUGS (11)
  1. CYCLOPHOSPHAMIDE. [Suspect]
     Active Substance: CYCLOPHOSPHAMIDE
     Indication: ACUTE LYMPHOCYTIC LEUKAEMIA
     Dosage: 640 MG
     Route: 042
     Dates: start: 20170918, end: 20170918
  2. CYTARABINE. [Suspect]
     Active Substance: CYTARABINE
     Indication: ACUTE LYMPHOCYTIC LEUKAEMIA
     Dosage: 48 MG
     Route: 042
     Dates: start: 20170921, end: 20170930
  3. METHOTREXATE. [Suspect]
     Active Substance: METHOTREXATE
     Indication: ACUTE LYMPHOCYTIC LEUKAEMIA
     Dosage: 12 MG
     Route: 037
     Dates: start: 20170817, end: 20170921
  4. ADRIAMYCIN [Suspect]
     Active Substance: DOXORUBICIN HYDROCHLORIDE
     Indication: ACUTE LYMPHOCYTIC LEUKAEMIA
     Dosage: 15.6 MG
     Route: 042
     Dates: start: 20170814, end: 20170828
  5. CYTARABINE. [Suspect]
     Active Substance: CYTARABINE
     Dosage: 30 MG
     Route: 037
     Dates: start: 20170817, end: 20170921
  6. TIOGUANINE [Suspect]
     Active Substance: THIOGUANINE ANHYDROUS
     Indication: ACUTE LYMPHOCYTIC LEUKAEMIA
     Dosage: 30 MG
     Route: 048
     Dates: start: 20170921, end: 20171001
  7. HYDROCORTISONE. [Suspect]
     Active Substance: HYDROCORTISONE
     Indication: ACUTE LYMPHOCYTIC LEUKAEMIA
     Dosage: 15 MG
     Route: 037
     Dates: start: 20170817, end: 20170921
  8. ONCASPAR [Suspect]
     Active Substance: PEGASPARGASE
     Indication: ACUTE LYMPHOCYTIC LEUKAEMIA
     Dosage: 1575 IU
     Route: 042
     Dates: start: 20170817, end: 20171002
  9. DEXAMETHASONE. [Suspect]
     Active Substance: DEXAMETHASONE
     Indication: ACUTE LYMPHOCYTIC LEUKAEMIA
     Dosage: 6 MG
     Route: 048
  10. VINCRISTINE [Suspect]
     Active Substance: VINCRISTINE
     Indication: ACUTE LYMPHOCYTIC LEUKAEMIA
     Dosage: 1 MG
     Route: 042
     Dates: start: 20170814, end: 20170828
  11. PREDNISONE. [Suspect]
     Active Substance: PREDNISONE
     Indication: ACUTE LYMPHOCYTIC LEUKAEMIA
     Dosage: 6 MG
     Route: 048
     Dates: start: 20170814, end: 20170904

REACTIONS (1)
  - Febrile neutropenia [Recovered/Resolved]

NARRATIVE: CASE EVENT DATE: 20171011
